FAERS Safety Report 14574278 (Version 1)
Quarter: 2018Q1

REPORT INFORMATION
  Report Type: Spontaneous
  Country: US (occurrence: US)
  Receive Date: 20180226
  Receipt Date: 20180226
  Transmission Date: 20180509
  Serious: No
  Sender: FDA-Public Use
  Company Number: US-LUNDBECK-DKLU2043881

PATIENT
  Age: 18 Month
  Sex: Male

DRUGS (2)
  1. PHENOBARBITAL. [Concomitant]
     Active Substance: PHENOBARBITAL
     Indication: INFANTILE SPASMS
     Route: 048
  2. VIGABATRIN (TABLET) [Suspect]
     Active Substance: VIGABATRIN
     Indication: INFANTILE SPASMS
     Route: 054

REACTIONS (3)
  - Product use issue [Unknown]
  - Anticonvulsant drug level above therapeutic [Unknown]
  - Product preparation error [Unknown]
